FAERS Safety Report 21648597 (Version 2)
Quarter: 2022Q4

REPORT INFORMATION
  Report Type: Spontaneous
  Country: HR (occurrence: HR)
  Receive Date: 20221128
  Receipt Date: 20221207
  Transmission Date: 20230113
  Serious: Yes (Other)
  Sender: FDA-Public Use
  Company Number: HR-SA-SAC20221114000884

PATIENT
  Age: 43 Year
  Sex: Female

DRUGS (9)
  1. AUBAGIO [Suspect]
     Active Substance: TERIFLUNOMIDE
     Indication: Relapsing-remitting multiple sclerosis
     Dosage: 14 MG, QD
     Route: 048
     Dates: start: 20220602
  2. BUDESONIDE [Concomitant]
     Active Substance: BUDESONIDE
     Dosage: UNK
  3. VITAMIN D3 [Concomitant]
     Active Substance: CHOLECALCIFEROL
     Dosage: UNK
  4. GLUCOPHAGE [Concomitant]
     Active Substance: METFORMIN HYDROCHLORIDE
     Dosage: UNK
  5. BIO KULT [Concomitant]
     Dosage: UNK
  6. PANCREATIN [Concomitant]
     Active Substance: PANCRELIPASE
     Dosage: UNK
  7. ESOMEPRAZOLE MAGNESIUM [Concomitant]
     Active Substance: ESOMEPRAZOLE MAGNESIUM
     Dosage: UNK
  8. MISAR [TELMISARTAN] [Concomitant]
     Dosage: UNK
  9. PRAZINE [ALPRAZOLAM] [Concomitant]
     Dosage: UNK

REACTIONS (5)
  - Colitis microscopic [Not Recovered/Not Resolved]
  - Blood pressure abnormal [Unknown]
  - Microcytic anaemia [Unknown]
  - Hyperlipidaemia [Unknown]
  - Diarrhoea [Recovered/Resolved]

NARRATIVE: CASE EVENT DATE: 20220101
